FAERS Safety Report 11233570 (Version 1)
Quarter: 2015Q3

REPORT INFORMATION
  Report Type: Spontaneous
  Country: FR (occurrence: FR)
  Receive Date: 20150702
  Receipt Date: 20150702
  Transmission Date: 20151125
  Serious: Yes (Other)
  Sender: FDA-Public Use
  Company Number: FR-CIPLA LTD.-2015FR05137

PATIENT

DRUGS (3)
  1. EPIRUBICIN [Suspect]
     Active Substance: EPIRUBICIN
     Indication: GERM CELL CANCER
     Dosage: 100 MG/M2 IN A 3-H INFUSION, ADMINISTERED ON DAY 1
  2. SODIUM MERCAPTOETHANESULFONATE [Concomitant]
     Route: 065
  3. PACLITAXEL. [Suspect]
     Active Substance: PACLITAXEL
     Indication: GERM CELL CANCER
     Dosage: 250 MG/M2 IN A 3-H INFUSION, ADMINISTERED ON DAY 1

REACTIONS (1)
  - Blood stem cell harvest failure [Unknown]
